FAERS Safety Report 24006337 (Version 7)
Quarter: 2024Q4

REPORT INFORMATION
  Report Type: Report from Study
  Country: JP (occurrence: JP)
  Receive Date: 20240624
  Receipt Date: 20241226
  Transmission Date: 20250115
  Serious: Yes (Other)
  Sender: ALNYLAM PHARMACEUTICALS
  Company Number: JP-ALNYLAM PHARMACEUTICALS, INC.-ALN-2023-001979

PATIENT

DRUGS (7)
  1. AMVUTTRA [Suspect]
     Active Substance: VUTRISIRAN
     Indication: Hereditary neuropathic amyloidosis
     Dosage: 25 MILLIGRAM
     Route: 058
     Dates: start: 20230118, end: 20230705
  2. NORVASC [Concomitant]
     Active Substance: AMLODIPINE BESYLATE
     Indication: Blood pressure increased
     Dosage: UNK
     Route: 048
  3. Vitamin A + D [Concomitant]
     Indication: Product used for unknown indication
     Dosage: UNK
     Route: 048
     Dates: start: 2023
  4. MIRABEGRON [Concomitant]
     Active Substance: MIRABEGRON
     Indication: Hypertonic bladder
     Dosage: UNK
     Route: 048
     Dates: start: 20240304
  5. PREGABALIN [Concomitant]
     Active Substance: PREGABALIN
     Indication: Product used for unknown indication
     Dosage: 75 MILLIGRAM
     Route: 048
  6. VITAMINS [Concomitant]
     Active Substance: VITAMINS
     Indication: Vitamin supplementation
     Dosage: 1000 MILLIGRAM/DAY
     Route: 048
  7. POTASSIUM ASPARTATE [Concomitant]
     Active Substance: POTASSIUM ASPARTATE
     Indication: Hypokalaemia
     Dosage: 1800 MILLIGRAM/DAY
     Route: 048

REACTIONS (42)
  - Cataract [Not Recovered/Not Resolved]
  - Muscle spasms [Unknown]
  - Anaesthesia [Unknown]
  - Gait disturbance [Unknown]
  - Peripheral coldness [Not Recovered/Not Resolved]
  - Sensory disturbance [Not Recovered/Not Resolved]
  - Muscular weakness [Not Recovered/Not Resolved]
  - Hypoaesthesia [Not Recovered/Not Resolved]
  - Facial pain [Not Recovered/Not Resolved]
  - Pyrexia [Recovered/Resolved]
  - Chest pain [Unknown]
  - Rhinalgia [Not Recovered/Not Resolved]
  - Constipation [Not Recovered/Not Resolved]
  - Cough [Not Recovered/Not Resolved]
  - Liver function test increased [Not Recovered/Not Resolved]
  - Disease progression [Not Recovered/Not Resolved]
  - Dysphagia [Not Recovered/Not Resolved]
  - Dry mouth [Not Recovered/Not Resolved]
  - Hypoaesthesia oral [Not Recovered/Not Resolved]
  - Bone density decreased [Recovering/Resolving]
  - Bradykinesia [Not Recovered/Not Resolved]
  - Muscle twitching [Unknown]
  - Facial wasting [Unknown]
  - Muscular weakness [Recovering/Resolving]
  - Discouragement [Recovering/Resolving]
  - Eyelid ptosis [Unknown]
  - Dizziness [Not Recovered/Not Resolved]
  - Asthenopia [Unknown]
  - Skin wrinkling [Not Recovered/Not Resolved]
  - Erythema [Unknown]
  - Blister [Unknown]
  - Eye pain [Recovered/Resolved]
  - Eye injury [Unknown]
  - Dysphonia [Unknown]
  - Stomatitis [Recovered/Resolved]
  - Nail disorder [Unknown]
  - Limb discomfort [Not Recovered/Not Resolved]
  - Peripheral swelling [Unknown]
  - Oedema peripheral [Unknown]
  - Pain in extremity [Not Recovered/Not Resolved]
  - Arthralgia [Recovering/Resolving]
  - Fatigue [Not Recovered/Not Resolved]

NARRATIVE: CASE EVENT DATE: 20230101
